FAERS Safety Report 26160314 (Version 1)
Quarter: 2025Q4

REPORT INFORMATION
  Report Type: Report from Study
  Country: CN (occurrence: CN)
  Receive Date: 20251216
  Receipt Date: 20251216
  Transmission Date: 20260117
  Serious: No
  Sender: MARINUS PHARMACEUTICALS
  Company Number: CN-MARINUS PHARMACEUTICALS, INC.-MAR2025000213

PATIENT

DRUGS (12)
  1. GANAXOLONE [Suspect]
     Active Substance: GANAXOLONE
     Indication: Epilepsy
     Dosage: 4.8 MILLILITER, QD
     Route: 048
     Dates: start: 20250516, end: 20250522
  2. GANAXOLONE [Suspect]
     Active Substance: GANAXOLONE
     Indication: CDKL5 deficiency disorder
     Dosage: 8.7 MILLILITER, QD
     Route: 048
     Dates: start: 20250523, end: 20250529
  3. GANAXOLONE [Suspect]
     Active Substance: GANAXOLONE
     Dosage: 12.9 MILLILITER, QD
     Route: 048
     Dates: start: 20250530, end: 20250605
  4. GANAXOLONE [Suspect]
     Active Substance: GANAXOLONE
     Dosage: 16.8 MILLILITER, QD
     Route: 048
     Dates: start: 20250606, end: 20250812
  5. VALPROATE SODIUM [Concomitant]
     Active Substance: VALPROATE SODIUM
     Indication: Epilepsy
     Dosage: 5 ML, BID
     Route: 048
     Dates: start: 20230227
  6. TOPIRAMATE [Concomitant]
     Active Substance: TOPIRAMATE
     Indication: Seizure
     Dosage: 32.5 MG, BID
     Route: 048
     Dates: start: 20230313, end: 202411
  7. TOPIRAMATE [Concomitant]
     Active Substance: TOPIRAMATE
     Indication: Epilepsy
     Dosage: 12.5 MG, BID
     Route: 048
     Dates: start: 202411, end: 20250813
  8. TOPIRAMATE [Concomitant]
     Active Substance: TOPIRAMATE
     Dosage: 8.3 MG EVERY MORNING AND 12.5 MG EVERY EVENING
     Route: 048
     Dates: start: 20250814, end: 20250818
  9. TOPIRAMATE [Concomitant]
     Active Substance: TOPIRAMATE
     Dosage: 8.3 MG, BID
     Route: 048
     Dates: start: 20250819, end: 20250823
  10. TOPIRAMATE [Concomitant]
     Active Substance: TOPIRAMATE
     Dosage: 4.2 MG EVERY MORNING AND 8.3 MG EVERY EVENING
     Route: 048
     Dates: start: 20250824, end: 20250828
  11. TOPIRAMATE [Concomitant]
     Active Substance: TOPIRAMATE
     Dosage: 4.2 MG, BID
     Route: 048
     Dates: start: 20240829, end: 20250902
  12. TOPIRAMATE [Concomitant]
     Active Substance: TOPIRAMATE
     Dosage: 4.2 MG, QD
     Route: 048
     Dates: start: 20250903, end: 20250907

REACTIONS (1)
  - Platelet count decreased [Recovered/Resolved]

NARRATIVE: CASE EVENT DATE: 20250813
